FAERS Safety Report 7284360-2 (Version None)
Quarter: 2011Q1

REPORT INFORMATION
  Report Type: 
  Country: None (occurrence: None)
  Receive Date: 20110209
  Receipt Date: 20110204
  Transmission Date: 20110831
  Serious: Yes (Other)
  Sender: FDA-Public Use
  Company Number: US-ABBOTT-11P-163-0703004-00

PATIENT
  Sex: Female

DRUGS (1)
  1. HUMIRA [Suspect]
     Indication: PSORIASIS
     Dates: start: 20010101

REACTIONS (5)
  - BACK DISORDER [None]
  - OEDEMA PERIPHERAL [None]
  - HYPOAESTHESIA [None]
  - CHEST PAIN [None]
  - EMPHYSEMA [None]
